FAERS Safety Report 8025361 (Version 7)
Quarter: 2013Q1

REPORT INFORMATION
  Report Type: Report from Study
  Country: US (occurrence: US)
  Receive Date: 20110707
  Receipt Date: 20130117
  Transmission Date: 20140127
  Serious: Yes (Hospitalization)
  Sender: FDA-Public Use
  Company Number: US-UCBSA-036103

PATIENT
  Age: 69 Year
  Sex: Female
  Weight: 93.8 kg

DRUGS (2)
  1. CERTOLIZUMAB PEGOL [Suspect]
     Indication: PSORIATIC ARTHROPATHY
     Route: 058
     Dates: end: 20110627
  2. CERTOLIZUMAB PEGOL [Suspect]
     Indication: PSORIATIC ARTHROPATHY
     Dosage: WEEK 0, 2 AND 4.
     Route: 058
     Dates: start: 20100623

REACTIONS (1)
  - Upper respiratory tract infection [Recovered/Resolved]
